FAERS Safety Report 5597273-9 (Version None)
Quarter: 2007Q4

REPORT INFORMATION
  Report Type: 
  Country: None (occurrence: None)
  Receive Date: 20071221
  Receipt Date: 20071105
  Transmission Date: 20080405
  Serious: No
  Sender: FDA-Public Use
  Company Number: SPV1-2007-04845

PATIENT
  Sex: Male

DRUGS (2)
  1. VYVANSE [Suspect]
  2. TENEX [Concomitant]

REACTIONS (1)
  - DRUG EFFECT DECREASED [None]
